FAERS Safety Report 13123441 (Version 1)
Quarter: 2017Q1

REPORT INFORMATION
  Report Type: Report from Study
  Country: US (occurrence: US)
  Receive Date: 20170117
  Receipt Date: 20170117
  Transmission Date: 20170428
  Serious: Yes (Other)
  Sender: FDA-Public Use
  Company Number: US-009507513-1701USA003664

PATIENT
  Sex: Female

DRUGS (1)
  1. INTRON A [Suspect]
     Active Substance: INTERFERON ALFA-2B
     Dosage: UNK
     Route: 065
     Dates: start: 201505

REACTIONS (2)
  - Adverse event [Unknown]
  - Tumour ulceration [Unknown]
